FAERS Safety Report 5034374-8 (Version None)
Quarter: 2006Q2

REPORT INFORMATION
  Report Type: 
  Country: None (occurrence: None)
  Receive Date: 20060518
  Receipt Date: 20050728
  Transmission Date: 20061013
  Serious: Yes (Other)
  Sender: FDA-Public Use
  Company Number: 2005100212

PATIENT
  Age: 25 Year
  Sex: Female

DRUGS (1)
  1. DEPO-PROVERA [Suspect]
     Indication: CONTRACEPTION
     Dosage: (MOST RECENT INJECTION)
     Dates: start: 20050517, end: 20050517

REACTIONS (2)
  - DRUG ADMINISTRATION ERROR [None]
  - UNINTENDED PREGNANCY [None]
